FAERS Safety Report 4561135-6 (Version None)
Quarter: 2005Q1

REPORT INFORMATION
  Report Type: 
  Country: None (occurrence: None)
  Receive Date: 20050124
  Receipt Date: 20050111
  Transmission Date: 20050727
  Serious: Yes (Hospitalization)
  Sender: FDA-Public Use
  Company Number: 2005010456

PATIENT
  Age: 45 Year
  Sex: Female

DRUGS (3)
  1. CELEBRA (CELECOXIB) [Suspect]
     Indication: INFLAMMATION
     Dosage: 200  MG, ORAL
     Route: 048
     Dates: start: 20041201, end: 20041201
  2. MODURETIC   MSD   (AMILORIDE HYDROCHLORIDE, HYDROCHLOTOTHIAZIDE) [Concomitant]
  3. BROMAZEPAM (BROMAZEPAM) [Concomitant]

REACTIONS (3)
  - BLOOD PRESSURE INCREASED [None]
  - ERYTHEMA [None]
  - TACHYCARDIA [None]
